FAERS Safety Report 18336983 (Version 3)
Quarter: 2021Q2

REPORT INFORMATION
  Report Type: Report from Study
  Country: None (occurrence: CA)
  Receive Date: 20201001
  Receipt Date: 20210517
  Transmission Date: 20210717
  Serious: Yes (Hospitalization, Other)
  Sender: FDA-Public Use
  Company Number: CA-ABBVIE-20K-028-3591560-00

PATIENT
  Age: 48 Year
  Sex: Female

DRUGS (2)
  1. RINVOQ [Suspect]
     Active Substance: UPADACITINIB
     Indication: RHEUMATOID ARTHRITIS
     Route: 048
     Dates: start: 20200729
  2. RINVOQ [Suspect]
     Active Substance: UPADACITINIB
     Route: 048
     Dates: start: 202101

REACTIONS (6)
  - Myocardial infarction [Unknown]
  - Drug ineffective [Unknown]
  - Cardiac valve rupture [Unknown]
  - Joint noise [Unknown]
  - Paralysis [Unknown]
  - Cyst [Unknown]

NARRATIVE: CASE EVENT DATE: 202009
